FAERS Safety Report 9859323 (Version 1)
Quarter: 2014Q1

REPORT INFORMATION
  Report Type: Spontaneous
  Country: HR (occurrence: HR)
  Receive Date: 20140131
  Receipt Date: 20140131
  Transmission Date: 20141002
  Serious: Yes (Hospitalization)
  Sender: FDA-Public Use
  Company Number: HR-PFIZER INC-2014022564

PATIENT
  Age: 35 Year
  Sex: Male

DRUGS (5)
  1. CISPLATIN PLIVA [Suspect]
     Indication: TESTIS CANCER
     Dosage: 44 MG, 1X/DAY
     Route: 041
     Dates: start: 20130820, end: 20130824
  2. ETOPOSIDE [Suspect]
     Indication: TESTIS CANCER
     Dosage: 220 MG, 1X/DAY
     Route: 041
     Dates: start: 20130820, end: 20130824
  3. BLEOCIN S [Suspect]
     Indication: TESTIS CANCER
     Dosage: 30 MG, 1X/DAY
     Route: 041
     Dates: start: 20130820, end: 20130820
  4. BLEOCIN S [Suspect]
     Dosage: 30 MG, 1X/DAY
     Route: 041
     Dates: start: 20130827, end: 20130827
  5. BLEOCIN S [Suspect]
     Dosage: 30 MG, 1X/DAY
     Route: 041
     Dates: start: 20130830, end: 20130903

REACTIONS (4)
  - Neutropenia [Recovered/Resolved]
  - Thrombocytopenia [Recovered/Resolved]
  - Penile haemorrhage [Recovered/Resolved]
  - Phimosis [Recovered/Resolved]
